FAERS Safety Report 7015066-2 (Version None)
Quarter: 2010Q3

REPORT INFORMATION
  Report Type: 
  Country: None (occurrence: None)
  Receive Date: 20100927
  Receipt Date: 20100913
  Transmission Date: 20110219
  Serious: Yes (Other)
  Sender: FDA-Public Use
  Company Number: PHHY2010MX61022

PATIENT
  Age: 79 Year
  Sex: Female

DRUGS (1)
  1. ZELMAC [Suspect]
     Indication: IRRITABLE BOWEL SYNDROME
     Dosage: 1 DF, QD
     Dates: start: 20080901

REACTIONS (3)
  - COLITIS [None]
  - DIVERTICULUM [None]
  - HAEMORRHOIDS [None]
